FAERS Safety Report 21649051 (Version 1)
Quarter: 2022Q4

REPORT INFORMATION
  Report Type: Report from Study
  Country: FR (occurrence: FR)
  Receive Date: 20221128
  Receipt Date: 20221128
  Transmission Date: 20230113
  Serious: Yes (Other)
  Sender: FDA-Public Use
  Company Number: FR-BRISTOL-MYERS SQUIBB COMPANY-2022-143713

PATIENT
  Age: 63 Year
  Sex: Male
  Weight: 69 kg

DRUGS (1)
  1. APIXABAN [Suspect]
     Active Substance: APIXABAN
     Indication: Embolism venous
     Route: 048
     Dates: start: 20220202, end: 20220427

REACTIONS (2)
  - Haemorrhage [Recovered/Resolved]
  - Scar [Recovered/Resolved]

NARRATIVE: CASE EVENT DATE: 20220416
